FAERS Safety Report 10570152 (Version 1)
Quarter: 2014Q4

REPORT INFORMATION
  Report Type: Spontaneous
  Country: None (occurrence: None)
  Receive Date: 20141106
  Receipt Date: 20141106
  Transmission Date: 20150529
  Serious: Yes (Hospitalization)
  Sender: FDA-Public Use
  Company Number: None

PATIENT
  Age: 41 Year
  Sex: Female
  Weight: 52.16 kg

DRUGS (1)
  1. AVELOX [Suspect]
     Active Substance: MOXIFLOXACIN HYDROCHLORIDE
     Indication: PNEUMONIA
     Dosage: 1 PILL A DAY 10 DAYS ONCE DAILY TAKEN BY MOUTH
     Route: 048

REACTIONS (11)
  - Hypoaesthesia [None]
  - Confusional state [None]
  - Depression [None]
  - Nausea [None]
  - Dry mouth [None]
  - Tremor [None]
  - Amnesia [None]
  - Sleep disorder [None]
  - Palpitations [None]
  - Nightmare [None]
  - Rash [None]

NARRATIVE: CASE EVENT DATE: 20141031
